FAERS Safety Report 10904945 (Version 1)
Quarter: 2015Q1

REPORT INFORMATION
  Report Type: Spontaneous
  Country: NL (occurrence: NL)
  Receive Date: 20150311
  Receipt Date: 20150311
  Transmission Date: 20150721
  Serious: Yes (Death, Hospitalization, Other)
  Sender: FDA-Public Use
  Company Number: NL-BAXTER-2015BAX011557

PATIENT
  Age: 80 Year
  Sex: Male

DRUGS (3)
  1. OXYBUTYNINE [Concomitant]
     Indication: PRODUCT USED FOR UNKNOWN INDICATION
     Route: 048
  2. FEIBA [Suspect]
     Active Substance: ANTI-INHIBITOR COAGULANT COMPLEX
     Indication: FACTOR VIII INHIBITION
     Route: 065
     Dates: end: 20150128
  3. ADVATE [Suspect]
     Active Substance: ANTIHEMOPHILIC FACTOR, HUMAN RECOMBINANT
     Indication: FACTOR VIII DEFICIENCY
     Route: 042
     Dates: start: 20140929, end: 20150119

REACTIONS (7)
  - Shock [Fatal]
  - Factor VIII inhibition [Unknown]
  - Dyspnoea [Unknown]
  - Lactic acidosis [Unknown]
  - Calculus bladder [Unknown]
  - Unresponsive to stimuli [Unknown]
  - Renal impairment [Unknown]

NARRATIVE: CASE EVENT DATE: 20150119
